FAERS Safety Report 18267475 (Version 1)
Quarter: 2020Q3

REPORT INFORMATION
  Report Type: Spontaneous
  Country: US (occurrence: US)
  Receive Date: 20200915
  Receipt Date: 20200915
  Transmission Date: 20201103
  Serious: Yes (Disabling)
  Sender: FDA-Public Use
  Company Number: None

PATIENT
  Age: 88 Year
  Sex: Male

DRUGS (5)
  1. MVI [Concomitant]
     Active Substance: VITAMINS
  2. LASIX [Concomitant]
     Active Substance: FUROSEMIDE
  3. COUMADIN [Concomitant]
     Active Substance: WARFARIN SODIUM
  4. ROCKLATAN [Suspect]
     Active Substance: LATANOPROST\NETARSUDIL MESYLATE
     Indication: GLAUCOMA
     Route: 047
     Dates: start: 20200831, end: 20200907
  5. TIMOLOL. [Concomitant]
     Active Substance: TIMOLOL

REACTIONS (3)
  - Eye haemorrhage [None]
  - Eye irritation [None]
  - Blindness [None]

NARRATIVE: CASE EVENT DATE: 20200907
